FAERS Safety Report 5373082-0 (Version None)
Quarter: 2007Q2

REPORT INFORMATION
  Report Type: 
  Country: None (occurrence: None)
  Receive Date: 20070626
  Receipt Date: 20070618
  Transmission Date: 20071010
  Serious: Yes (Death, Hospitalization)
  Sender: FDA-Public Use
  Company Number: 234966K07USA

PATIENT
  Age: 80 Year
  Sex: Female

DRUGS (6)
  1. REBIF [Suspect]
     Indication: MULTIPLE SCLEROSIS
     Dosage: 44 MCG, 3 IN 1 WEEKS, SUBCUTANEOUS
     Route: 058
     Dates: start: 20060828, end: 20070301
  2. TSABRI (NATALIZUMAB) [Suspect]
     Dates: start: 20070309
  3. BACLOFEN [Concomitant]
  4. TEGRETOL [Concomitant]
  5. HYDROCODONE (HYDROCODONE) [Concomitant]
  6. NEURONTIN [Concomitant]

REACTIONS (3)
  - CONDITION AGGRAVATED [None]
  - MULTIPLE SCLEROSIS [None]
  - PAIN [None]
